FAERS Safety Report 17693404 (Version 1)
Quarter: 2020Q2

REPORT INFORMATION
  Report Type: Spontaneous
  Country: US (occurrence: US)
  Receive Date: 20200420
  Receipt Date: 20200420
  Transmission Date: 20200714
  Serious: No
  Sender: FDA-Public Use
  Company Number: None

PATIENT
  Age: 74 Year
  Sex: Male

DRUGS (1)
  1. ATORVASTATIN (ATORVASTATIN CA 40MG TAB) [Suspect]
     Active Substance: ATORVASTATIN CALCIUM
     Dates: start: 20190503, end: 20200125

REACTIONS (2)
  - Vertigo [None]
  - Headache [None]

NARRATIVE: CASE EVENT DATE: 20200205
